FAERS Safety Report 25882116 (Version 1)
Quarter: 2025Q4

REPORT INFORMATION
  Report Type: Report from Study
  Country: CA (occurrence: CA)
  Receive Date: 20251006
  Receipt Date: 20251006
  Transmission Date: 20260118
  Serious: Yes (Other)
  Sender: ABBVIE
  Company Number: CA-ABBVIE-6472974

PATIENT
  Sex: Male

DRUGS (2)
  1. RINVOQ [Suspect]
     Active Substance: UPADACITINIB
     Indication: Dermatitis atopic
     Route: 048
     Dates: end: 20250430
  2. MELOXICAM [Suspect]
     Active Substance: MELOXICAM
     Indication: Product used for unknown indication
     Route: 065
     Dates: end: 20250430

REACTIONS (5)
  - Carotid artery occlusion [Unknown]
  - Pain [Unknown]
  - Musculoskeletal stiffness [Unknown]
  - Rash pruritic [Not Recovered/Not Resolved]
  - Diarrhoea [Unknown]
